FAERS Safety Report 25177012 (Version 1)
Quarter: 2025Q2

REPORT INFORMATION
  Report Type: Spontaneous
  Country: US (occurrence: US)
  Receive Date: 20250409
  Receipt Date: 20250409
  Transmission Date: 20250716
  Serious: Yes (Disabling, Other)
  Sender: CHATTEM
  Company Number: US-OPELLA-2025OHG009975

PATIENT
  Sex: Male

DRUGS (1)
  1. GOLD BOND ORIGINAL STRENGTH [Suspect]
     Active Substance: MENTHOL
     Indication: Product used for unknown indication

REACTIONS (3)
  - Mesothelioma [Unknown]
  - Occupational exposure to toxic agent [Unknown]
  - Exposure to chemical pollution [Unknown]

NARRATIVE: CASE EVENT DATE: 20241101
